FAERS Safety Report 9959825 (Version 1)
Quarter: 2014Q1

REPORT INFORMATION
  Report Type: Report from Study
  Country: US (occurrence: US)
  Receive Date: 20140305
  Receipt Date: 20140305
  Transmission Date: 20141002
  Serious: No
  Sender: FDA-Public Use
  Company Number: US-ABBVIE-13P-163-1105985-00

PATIENT
  Age: 76 Year
  Sex: Female
  Weight: 90.8 kg

DRUGS (6)
  1. HUMIRA [Suspect]
     Indication: RHEUMATOID ARTHRITIS
     Dates: start: 2007
  2. CELEBREX [Concomitant]
     Indication: RHEUMATOID ARTHRITIS
  3. PREDNISONE [Concomitant]
     Indication: RHEUMATOID ARTHRITIS
  4. LISINOPRIL [Concomitant]
     Indication: HYPERTENSION
  5. VITAMIN D [Concomitant]
     Indication: MINERAL SUPPLEMENTATION
  6. GABAPENTIN [Concomitant]
     Indication: PAIN IN EXTREMITY

REACTIONS (1)
  - Wound [Recovered/Resolved]
